FAERS Safety Report 8282411-X (Version None)
Quarter: 2012Q2

REPORT INFORMATION
  Report Type: 
  Country: None (occurrence: None)
  Receive Date: 20120413
  Receipt Date: 20120412
  Transmission Date: 20120825
  Serious: Yes (Death, Other)
  Sender: FDA-Public Use
  Company Number: VE-BAYER-201021095LA

PATIENT
  Age: 60 Year
  Sex: Male

DRUGS (8)
  1. GALVUS [Concomitant]
     Indication: DIABETES MELLITUS
     Route: 048
     Dates: start: 20090101, end: 20101031
  2. CRESTOR [Concomitant]
     Indication: DYSLIPIDAEMIA
     Route: 048
     Dates: start: 20090101, end: 20101031
  3. LEVOTHYROXINE SODIUM [Concomitant]
     Indication: HYPOTHYROIDISM
     Route: 048
     Dates: start: 20100510, end: 20101031
  4. LASIX [Concomitant]
     Indication: HEPATIC CIRRHOSIS
     Route: 048
     Dates: start: 20100204, end: 20101031
  5. NEXAVAR [Suspect]
     Indication: HEPATIC NEOPLASM MALIGNANT
     Route: 048
     Dates: start: 20101015, end: 20101030
  6. AZATIOPRIN [Concomitant]
     Indication: AUTOIMMUNE HEPATITIS
     Route: 048
     Dates: start: 20091001, end: 20101031
  7. SPIRONOLACTONE [Concomitant]
     Indication: HEPATIC CIRRHOSIS
     Route: 048
     Dates: start: 20100201, end: 20101031
  8. PREDNISONE [Concomitant]
     Indication: AUTOIMMUNE HEPATITIS
     Route: 048
     Dates: start: 20091001, end: 20101031

REACTIONS (3)
  - DEEP VEIN THROMBOSIS [None]
  - ERYTHEMA [None]
  - PULMONARY EMBOLISM [None]
